FAERS Safety Report 4560959-9 (Version None)
Quarter: 2005Q1

REPORT INFORMATION
  Report Type: 
  Country: None (occurrence: None)
  Receive Date: 20050126
  Receipt Date: 20040331
  Transmission Date: 20050727
  Serious: No
  Sender: FDA-Public Use
  Company Number: US-BRISTOL-MYERS SQUIBB COMPANY-12547212

PATIENT
  Age: 27 Year
  Sex: Female
  Weight: 99 kg

DRUGS (1)
  1. GLUCOPHAGE [Suspect]
     Indication: HYPERINSULINAEMIA
     Route: 048
     Dates: end: 20040326

REACTIONS (1)
  - LIVER FUNCTION TEST ABNORMAL [None]
